FAERS Safety Report 13344901 (Version 1)
Quarter: 2017Q1

REPORT INFORMATION
  Report Type: Spontaneous
  Country: US (occurrence: US)
  Receive Date: 20170316
  Receipt Date: 20170316
  Transmission Date: 20170428
  Serious: Yes (Hospitalization)
  Sender: FDA-Public Use
  Company Number: None

PATIENT
  Age: 80 Year
  Sex: Male

DRUGS (8)
  1. FUROSEMIDE. [Concomitant]
     Active Substance: FUROSEMIDE
  2. RANITIDINE. [Concomitant]
     Active Substance: RANITIDINE
  3. CENTRUM [Concomitant]
     Active Substance: VITAMINS
  4. TRACLEER [Concomitant]
     Active Substance: BOSENTAN
  5. ADCIRCA [Suspect]
     Active Substance: TADALAFIL
     Indication: PULMONARY ARTERIAL HYPERTENSION
     Route: 048
     Dates: start: 20111018
  6. SPIRONOLACTONE. [Concomitant]
     Active Substance: SPIRONOLACTONE
  7. COUMADIN [Concomitant]
     Active Substance: WARFARIN SODIUM
  8. CLARITIN [Concomitant]
     Active Substance: LORATADINE

REACTIONS (4)
  - Nephrolithiasis [None]
  - Haematoma [None]
  - Pulmonary embolism [None]
  - Blood urine present [None]

NARRATIVE: CASE EVENT DATE: 20170119
